FAERS Safety Report 9524951 (Version 1)
Quarter: 2013Q3

REPORT INFORMATION
  Report Type: Spontaneous
  Country: US (occurrence: US)
  Receive Date: 20130916
  Receipt Date: 20130916
  Transmission Date: 20140515
  Serious: Yes (Other)
  Sender: FDA-Public Use
  Company Number: US-PFIZER INC-2013264004

PATIENT
  Age: 58 Year
  Sex: Female
  Weight: 100 kg

DRUGS (4)
  1. LYRICA [Suspect]
     Indication: DIABETES MELLITUS
     Dosage: 100 MG, 3X/DAY
     Dates: start: 201106
  2. LYRICA [Suspect]
     Indication: RADIATION INJURY
  3. LISINOPRIL [Concomitant]
     Indication: HYPERTENSION
     Dosage: 20 MG, 1X/DAY
     Dates: start: 1993
  4. LASIX [Concomitant]
     Indication: INCONTINENCE
     Dosage: 40 MG, 2X/DAY

REACTIONS (5)
  - Off label use [Unknown]
  - Abasia [Unknown]
  - Pain in extremity [Unknown]
  - Fall [Unknown]
  - Hypoaesthesia [Unknown]
